FAERS Safety Report 17359157 (Version 1)
Quarter: 2020Q1

REPORT INFORMATION
  Report Type: Spontaneous
  Country: FR (occurrence: FR)
  Receive Date: 20200203
  Receipt Date: 20200203
  Transmission Date: 20200409
  Serious: Yes (Hospitalization)
  Sender: FDA-Public Use
  Company Number: FR-TEVA-2020-FR-1177533

PATIENT
  Age: 64 Year
  Sex: Male

DRUGS (18)
  1. XARELTO [Concomitant]
     Active Substance: RIVAROXABAN
     Dosage: UNSPECIFIED
     Route: 048
  2. SOLUPRED 20 MG, COMPRIM? ORODISPERSIBLE [Concomitant]
     Active Substance: PREDNISOLONE SODIUM METAZOATE
     Dosage: 120 MG 1 DAYS
     Dates: start: 20190918
  3. ZIEXTENZO 6 MG, SOLUTION INJECTABLE EN SERINGUE PR?REMPLIE [Concomitant]
     Dosage: 1 DOSAGE FORMS 1 CYCLICAL
     Route: 058
  4. ZINNAT 250 MG, COMPRIM? PELLICUL? [Concomitant]
     Dosage: 4 DOSAGE FORMS 1 DAYS
     Route: 048
  5. BACTRIM [Concomitant]
     Active Substance: SULFAMETHOXAZOLE\TRIMETHOPRIM
     Indication: LYMPHOMA
     Dosage: 1 DOSAGE FORMS 2 DAYS
     Route: 048
     Dates: start: 20191110
  6. DOXORUBICINE [Concomitant]
     Active Substance: DOXORUBICIN
     Dosage: 1 DOSAGE FORMS 1 DAYS
     Route: 065
     Dates: start: 20191010
  7. LEVOTHYROX 25 MICROGRAMMES, COMPRIM? S?CABLE [Concomitant]
     Active Substance: LEVOTHYROXINE SODIUM
     Dosage: 1 DOSAGE FORMS 1 DAYS
     Route: 048
  8. PARACETAMOL [Concomitant]
     Active Substance: ACETAMINOPHEN
     Dosage: 4 GRAM 1 DAYS
     Route: 048
  9. EPLERENONE. [Concomitant]
     Active Substance: EPLERENONE
     Dosage: 25 MG 1 DAYS
     Route: 048
  10. INNOHEP [Concomitant]
     Active Substance: TINZAPARIN SODIUM
     Dosage: UNSPECIFIED
     Route: 058
  11. ADCETRIS [Suspect]
     Active Substance: BRENTUXIMAB VEDOTIN
     Indication: LYMPHOMA
     Dosage: 1 DOSAGE FORMS 1 CYCLICAL
     Route: 042
     Dates: start: 20191010
  12. OFLOXACINE ARROW 200 MG, COMPRIM? PELLICUL? S?CABLE [Concomitant]
     Dosage: 2 DOSAGE FORMS 1 DAYS
     Route: 048
  13. BISOPROLOL (FUMARATE ACIDE DE) [Concomitant]
     Active Substance: BISOPROLOL FUMARATE
     Dosage: 2.5 MG 1 DAYS
     Route: 048
  14. CYCLOPHOSPHAMIDE. [Suspect]
     Active Substance: CYCLOPHOSPHAMIDE
     Indication: LYMPHOMA
     Dosage: 1 DOSAGE FORMS 1 CYCLICAL
     Route: 065
     Dates: start: 20190924
  15. CORTANCYL 5 MG, COMPRIM? [Concomitant]
     Active Substance: PREDNISONE
     Dosage: 20 MG 1 WEEKS
     Route: 048
  16. CETIRIZINE (DICHLORHYDRATE DE) [Concomitant]
     Active Substance: CETIRIZINE HYDROCHLORIDE
     Dosage: 10 MG 1 DAYS
     Route: 048
  17. VALACICLOVIR ALMUS 500 MG, COMPRIM? PELLICUL? S?CABLE [Concomitant]
     Dosage: 2 DOSAGE FORMS 1 DAYS
     Route: 048
  18. ETOPOSIDE. [Suspect]
     Active Substance: ETOPOSIDE
     Indication: LYMPHOMA
     Dosage: 1 DOSAGE FORMS 1 CYCLICAL
     Route: 065
     Dates: start: 20190924

REACTIONS (1)
  - Colitis [Recovered/Resolved]

NARRATIVE: CASE EVENT DATE: 201910
